FAERS Safety Report 25315933 (Version 1)
Quarter: 2025Q2

REPORT INFORMATION
  Report Type: Spontaneous
  Country: CN (occurrence: CN)
  Receive Date: 20250515
  Receipt Date: 20250515
  Transmission Date: 20250717
  Serious: Yes (Other)
  Sender: NOVO NORDISK
  Company Number: CN-NOVOPROD-1424671

PATIENT
  Age: 85 Year
  Sex: Female
  Weight: 75 kg

DRUGS (4)
  1. INSULIN ASPART [Suspect]
     Active Substance: INSULIN ASPART
     Indication: Type 2 diabetes mellitus
     Dosage: 34 IU, QD (10 UNITS IN THE MORNING, 12 UNITS AT NOON AND 12 UNITS IN THE EVENING)
  2. HERBALS [Concomitant]
     Active Substance: HERBALS
     Indication: Product used for unknown indication
  3. HAI KUN SHEN XI [Concomitant]
     Indication: Product used for unknown indication
  4. DIETARY SUPPLEMENT\OPHIOCORDYCEPS SINENSIS [Concomitant]
     Active Substance: DIETARY SUPPLEMENT\OPHIOCORDYCEPS SINENSIS
     Indication: Product used for unknown indication

REACTIONS (2)
  - Vision blurred [Unknown]
  - Cataract [Unknown]
